FAERS Safety Report 20756745 (Version 1)
Quarter: 2022Q2

REPORT INFORMATION
  Report Type: Spontaneous
  Country: CN (occurrence: CN)
  Receive Date: 20220427
  Receipt Date: 20220427
  Transmission Date: 20220721
  Serious: Yes (Other)
  Sender: FDA-Public Use
  Company Number: CN-PFIZER INC-202200585058

PATIENT
  Age: 64 Year
  Sex: Male
  Weight: 64 kg

DRUGS (4)
  1. INLYTA [Suspect]
     Active Substance: AXITINIB
     Indication: Neoplasm
     Dosage: 5 MG, 2X/DAY
     Route: 048
     Dates: start: 20210719, end: 20220318
  2. INLYTA [Suspect]
     Active Substance: AXITINIB
     Indication: Renal cancer
  3. TISLELIZUMAB [Suspect]
     Active Substance: TISLELIZUMAB
     Indication: Neoplasm
     Dosage: 200 MG, ONCE EVERY 21 DAYS
     Route: 041
     Dates: start: 20210719, end: 20220318
  4. TISLELIZUMAB [Suspect]
     Active Substance: TISLELIZUMAB
     Indication: Renal cancer

REACTIONS (11)
  - Stomatitis [Recovering/Resolving]
  - Lip haemorrhage [Recovering/Resolving]
  - Lip ulceration [Recovering/Resolving]
  - Scab [Recovering/Resolving]
  - Rash [Recovering/Resolving]
  - Erythema [Recovering/Resolving]
  - Pruritus [Recovering/Resolving]
  - Peripheral swelling [Recovering/Resolving]
  - Papule [Recovering/Resolving]
  - Skin exfoliation [Recovering/Resolving]
  - Hyperkeratosis [Recovering/Resolving]

NARRATIVE: CASE EVENT DATE: 20220318
